FAERS Safety Report 13114100 (Version 3)
Quarter: 2017Q2

REPORT INFORMATION
  Report Type: Spontaneous
  Country: US (occurrence: US)
  Receive Date: 20170113
  Receipt Date: 20170601
  Transmission Date: 20170830
  Serious: Yes (Other)
  Sender: FDA-Public Use
  Company Number: US-BAYER-2017-007155

PATIENT
  Age: 25 Year
  Sex: Female

DRUGS (1)
  1. MIRENA [Suspect]
     Active Substance: LEVONORGESTREL
     Indication: CONTRACEPTION
     Dosage: 20 MCG/24HR, CONT
     Route: 015
     Dates: start: 20161130, end: 20170207

REACTIONS (15)
  - Device dislocation [Unknown]
  - Post procedural haemorrhage [None]
  - Procedural pain [None]
  - Stress [None]
  - Sleep disorder [None]
  - Anxiety [None]
  - Anger [None]
  - Appetite disorder [None]
  - Asthenia [None]
  - Helplessness [None]
  - Depressed mood [None]
  - Crying [None]
  - Depression [None]
  - Apathy [None]
  - Agitation [None]

NARRATIVE: CASE EVENT DATE: 201612
